FAERS Safety Report 4309338-X (Version None)
Quarter: 2004Q1

REPORT INFORMATION
  Report Type: 
  Country: None (occurrence: None)
  Receive Date: 20040302
  Receipt Date: 20030902
  Transmission Date: 20041129
  Serious: Yes (Hospitalization, Other)
  Sender: FDA-Public Use
  Company Number: WAES 0309USA00252

PATIENT
  Age: 68 Year
  Sex: Female
  Weight: 105 kg

DRUGS (14)
  1. ASPIRIN [Concomitant]
  2. LIPITOR [Concomitant]
  3. OS-CAL [Concomitant]
  4. CASANTHRANOL AND DOCUSATE SODIUM [Concomitant]
  5. MONOPRIL [Concomitant]
     Route: 048
  6. HYDRODIURIL [Concomitant]
     Route: 048
  7. HYDROCODONE HYDROCHLORIDE [Concomitant]
  8. HUMULIN R [Concomitant]
     Route: 058
  9. HUMULIN N [Concomitant]
     Route: 058
  10. HUMULIN N [Concomitant]
     Route: 058
  11. ADALAT [Concomitant]
  12. VIOXX [Suspect]
     Route: 048
     Dates: start: 20001208, end: 20010905
  13. VIOXX [Suspect]
     Route: 048
     Dates: start: 20000301, end: 20001207
  14. VITAMINS (UNSPECIFIED) [Concomitant]

REACTIONS (42)
  - ARTHRITIS [None]
  - BLOOD PRESSURE SYSTOLIC INCREASED [None]
  - BUNION [None]
  - BURNING SENSATION [None]
  - BURSITIS [None]
  - CAROTID ARTERY ATHEROMA [None]
  - CATARACT [None]
  - CATARACT CORTICAL [None]
  - CHEST PAIN [None]
  - CHEST WALL PAIN [None]
  - CORNEAL DISORDER [None]
  - DIABETIC NEUROPATHY [None]
  - DYSPHAGIA [None]
  - EPISTAXIS [None]
  - EXOSTOSIS [None]
  - FALL [None]
  - GASTROOESOPHAGEAL REFLUX DISEASE [None]
  - GLAUCOMA [None]
  - GOUT [None]
  - HAEMOGLOBIN DECREASED [None]
  - HOARSENESS [None]
  - HYPERLIPIDAEMIA [None]
  - HYPERTENSION [None]
  - HYPOAESTHESIA [None]
  - LACUNAR INFARCTION [None]
  - LARYNGITIS [None]
  - LOCALISED OSTEOARTHRITIS [None]
  - MACULAR DEGENERATION [None]
  - MEDICATION ERROR [None]
  - NEUROPATHY [None]
  - OCULAR HYPERTENSION [None]
  - OEDEMA PERIPHERAL [None]
  - OESOPHAGITIS [None]
  - OROPHARYNGEAL SPASM [None]
  - PALATAL DISORDER [None]
  - PERIPHERAL VASCULAR DISORDER [None]
  - PUPILS UNEQUAL [None]
  - REGURGITATION OF FOOD [None]
  - TENDONITIS [None]
  - VIBRATION TEST ABNORMAL [None]
  - VISION BLURRED [None]
  - WEIGHT DECREASED [None]
